FAERS Safety Report 21722407 (Version 1)
Quarter: 2022Q4

REPORT INFORMATION
  Report Type: Report from Study
  Country: US (occurrence: US)
  Receive Date: 20221213
  Receipt Date: 20221213
  Transmission Date: 20230113
  Serious: Yes (Other)
  Sender: FDA-Public Use
  Company Number: US-SUN PHARMACEUTICAL INDUSTRIES LTD-2022R1-368319

PATIENT

DRUGS (1)
  1. IBUPROFEN [Suspect]
     Active Substance: IBUPROFEN
     Indication: Antinuclear antibody
     Dosage: UNK
     Route: 065

REACTIONS (2)
  - Epigastric discomfort [Unknown]
  - Nausea [Unknown]
